FAERS Safety Report 8790150 (Version 1)
Quarter: 2012Q4

REPORT INFORMATION
  Report Type: 
  Country: US (occurrence: US)
  Receive Date: 20120917
  Receipt Date: 20120917
  Transmission Date: 20130627
  Serious: Yes (Death, Other)
  Sender: FDA-Public Use
  Company Number: US-BRISTOL-MYERS SQUIBB COMPANY-16936635

PATIENT
  Age: 83 Year
  Sex: Male

DRUGS (3)
  1. COUMADIN [Suspect]
  2. DIGOXIN [Interacting]
  3. REVATIO [Suspect]
     Dates: start: 201111

REACTIONS (3)
  - Cor pulmonale [Fatal]
  - Chronic obstructive pulmonary disease [Fatal]
  - Drug interaction [Unknown]
